FAERS Safety Report 4961383-7 (Version None)
Quarter: 2006Q1

REPORT INFORMATION
  Report Type: 
  Country: None (occurrence: None)
  Receive Date: 20060201
  Receipt Date: 20051123
  Transmission Date: 20060701
  Serious: No
  Sender: FDA-Public Use
  Company Number: 2005PV004829

PATIENT
  Age: 73 Year
  Sex: Female
  Weight: 90.7194 kg

DRUGS (11)
  1. BYETTA [Suspect]
     Indication: DIABETES MELLITUS
     Dosage: 10 MCG;BID;SC
     Route: 058
     Dates: start: 20050924
  2. LANTUS [Concomitant]
  3. ATENOLOL [Concomitant]
  4. TORSEMIDE [Concomitant]
  5. ADDERALL 10 [Concomitant]
  6. CELEBREX [Concomitant]
  7. TRAMADOL HYDROCHLORIDE AND ACETAMINOPHEN [Concomitant]
  8. LIPITOR [Concomitant]
  9. CENTRUM SILVER [Concomitant]
  10. BIOTIN [Concomitant]
  11. HUMALOG [Concomitant]

REACTIONS (3)
  - BLOOD GLUCOSE DECREASED [None]
  - DECREASED APPETITE [None]
  - WEIGHT DECREASED [None]
